FAERS Safety Report 14809029 (Version 9)
Quarter: 2019Q3

REPORT INFORMATION
  Report Type: Report from Study
  Country: CR (occurrence: CR)
  Receive Date: 20180425
  Receipt Date: 20190930
  Transmission Date: 20191004
  Serious: Yes (Hospitalization, Other)
  Sender: FDA-Public Use
  Company Number: PHHY2018CR073122

PATIENT
  Age: 76 Year
  Sex: Male
  Weight: 79 kg

DRUGS (7)
  1. SANDOSTATIN LAR DEPOT [Suspect]
     Active Substance: OCTREOTIDE ACETATE
     Indication: PITUITARY TUMOUR
     Dosage: 20 MG, UNK
     Route: 065
     Dates: start: 2005
  2. SANDOSTATIN LAR DEPOT [Suspect]
     Active Substance: OCTREOTIDE ACETATE
     Dosage: 2 INJECTION OF 20 MG EACH, EVERY 28 DAYS
     Route: 065
  3. FAMOTIDINE. [Concomitant]
     Active Substance: FAMOTIDINE
     Indication: PRODUCT USED FOR UNKNOWN INDICATION
     Dosage: 40 MG, BID
     Route: 048
  4. COLAGEN [Concomitant]
     Indication: PRODUCT USED FOR UNKNOWN INDICATION
     Dosage: 2 DF, BID (1-0-1)
     Route: 065
     Dates: start: 2019
  5. SANDOSTATIN LAR DEPOT [Suspect]
     Active Substance: OCTREOTIDE ACETATE
     Dosage: UNK
     Route: 065
     Dates: start: 2004
  6. SANDOSTATIN LAR DEPOT [Suspect]
     Active Substance: OCTREOTIDE ACETATE
     Indication: ACROMEGALY
     Dosage: 20 MG, Q2MO
     Route: 065
     Dates: start: 2004
  7. PROPRANOLOL [Concomitant]
     Active Substance: PROPRANOLOL HYDROCHLORIDE
     Indication: PRODUCT USED FOR UNKNOWN INDICATION
     Dosage: 10 MG, BID
     Route: 048

REACTIONS (23)
  - Tremor [Unknown]
  - Wound [Unknown]
  - Fat tissue increased [Unknown]
  - Pulse abnormal [Unknown]
  - Pain [Recovering/Resolving]
  - Arthralgia [Unknown]
  - Fall [Recovering/Resolving]
  - Hip fracture [Unknown]
  - Deafness [Unknown]
  - Influenza [Unknown]
  - Dizziness [Unknown]
  - Cartilage injury [Unknown]
  - Movement disorder [Unknown]
  - Weight increased [Unknown]
  - Limb discomfort [Unknown]
  - Head banging [Recovering/Resolving]
  - Gait disturbance [Not Recovered/Not Resolved]
  - Malaise [Unknown]
  - Femur fracture [Unknown]
  - Fatigue [Unknown]
  - Tooth disorder [Unknown]
  - General physical health deterioration [Unknown]
  - Asthenia [Unknown]

NARRATIVE: CASE EVENT DATE: 20180411
